FAERS Safety Report 14223595 (Version 2)
Quarter: 2017Q4

REPORT INFORMATION
  Report Type: Report from Study
  Country: DE (occurrence: DE)
  Receive Date: 20171124
  Receipt Date: 20171213
  Transmission Date: 20180321
  Serious: Yes (Other)
  Sender: FDA-Public Use
  Company Number: PHHY2017DE014804

PATIENT
  Sex: Male

DRUGS (2)
  1. SIGNIFOR [Suspect]
     Active Substance: PASIREOTIDE
     Dosage: UNK
     Route: 058
     Dates: start: 20140122, end: 20170710
  2. SIGNIFOR [Suspect]
     Active Substance: PASIREOTIDE
     Indication: PITUITARY-DEPENDENT CUSHING^S SYNDROME
     Dosage: UNK
     Route: 058
     Dates: start: 20130516, end: 20140121

REACTIONS (6)
  - Asthenia [Unknown]
  - Polycythaemia [Recovered/Resolved]
  - Diabetes mellitus [Unknown]
  - Benign prostatic hyperplasia [Unknown]
  - Polyuria [Unknown]
  - Fatigue [Unknown]

NARRATIVE: CASE EVENT DATE: 20161213
